FAERS Safety Report 6505938-7 (Version None)
Quarter: 2009Q4

REPORT INFORMATION
  Report Type: 
  Country: None (occurrence: None)
  Receive Date: 20091217
  Receipt Date: 20091217
  Transmission Date: 20100525
  Serious: Yes (Hospitalization, Other)
  Sender: FDA-Public Use
  Company Number: None

PATIENT
  Age: 95 Year
  Sex: Male
  Weight: 97.5234 kg

DRUGS (1)
  1. DARVOCET-N 100 [Suspect]
     Indication: ANALGESIC THERAPY
     Dosage: 50 - 1-2 - 4 HRS

REACTIONS (2)
  - FEELING ABNORMAL [None]
  - HALLUCINATION [None]
